FAERS Safety Report 8799686 (Version 1)
Quarter: 2012Q4

REPORT INFORMATION
  Report Type: Spontaneous
  Country: JP (occurrence: None)
  Receive Date: 20120914
  Receipt Date: 20120914
  Transmission Date: 20130627
  Serious: Yes (Other)
  Sender: FDA-Public Use
  Company Number: 2012P1056274

PATIENT
  Age: 73 Year
  Sex: Male

DRUGS (1)
  1. FAMOTIDINE [Suspect]
     Route: 048

REACTIONS (1)
  - Electrocardiogram QT prolonged [None]
